FAERS Safety Report 12746668 (Version 2)
Quarter: 2016Q3

REPORT INFORMATION
  Report Type: Spontaneous
  Country: FR (occurrence: FR)
  Receive Date: 20160915
  Receipt Date: 20160921
  Transmission Date: 20161109
  Serious: Yes (Death, Hospitalization, Other)
  Sender: FDA-Public Use
  Company Number: FR-ASTRAZENECA-2016SE95871

PATIENT
  Age: 916 Month
  Sex: Male

DRUGS (6)
  1. MONO-TILDIEM [Concomitant]
     Active Substance: DILTIAZEM HYDROCHLORIDE
  2. RYTHMOL [Concomitant]
     Active Substance: PROPAFENONE HYDROCHLORIDE
     Dosage: 300
  3. PRAVASTATIN. [Concomitant]
     Active Substance: PRAVASTATIN
  4. KOMBOGLYZE [Suspect]
     Active Substance: METFORMIN HYDROCHLORIDE\SAXAGLIPTIN
     Indication: DIABETES MELLITUS
     Dosage: 2.5 MG + 1000 MG, 1 DF TWO TIMES A DAY
     Route: 048
     Dates: start: 2011
  5. DIAMICRON [Concomitant]
     Active Substance: GLICLAZIDE
  6. ENALAPRIL [Concomitant]
     Active Substance: ENALAPRIL

REACTIONS (6)
  - Coma scale abnormal [Unknown]
  - Renal failure [Unknown]
  - Lactic acidosis [Fatal]
  - Dehydration [Unknown]
  - Polydipsia [Unknown]
  - Polyuria [Unknown]

NARRATIVE: CASE EVENT DATE: 201608
